FAERS Safety Report 5814824-7 (Version None)
Quarter: 2008Q3

REPORT INFORMATION
  Report Type: 
  Country: None (occurrence: None)
  Receive Date: 20080718
  Receipt Date: 20080709
  Transmission Date: 20090109
  Serious: Yes (Other)
  Sender: FDA-Public Use
  Company Number: GB-JNJFOC-20060201853

PATIENT
  Sex: Female
  Weight: 58 kg

DRUGS (9)
  1. REMICADE [Suspect]
     Indication: RHEUMATOID ARTHRITIS
     Route: 042
  2. ENBREL [Suspect]
     Indication: RHEUMATOID ARTHRITIS
     Route: 058
  3. PREDNISOLONE [Suspect]
     Indication: RHEUMATOID ARTHRITIS
     Route: 048
  4. LISINOPRIL [Concomitant]
     Indication: HYPERTENSION
     Route: 048
  5. ZOPICLONE [Concomitant]
     Indication: SLEEP DISORDER
     Route: 048
  6. FOSAMAX [Concomitant]
     Route: 048
  7. CO-DYDRAMOL [Concomitant]
     Indication: ARTHRALGIA
     Route: 048
  8. PLAQUENIL [Concomitant]
  9. AMITRIPTYLINE HCL [Concomitant]

REACTIONS (3)
  - BASAL CELL CARCINOMA [None]
  - ECZEMA [None]
  - SKIN GRAFT [None]
